FAERS Safety Report 14936847 (Version 1)
Quarter: 2018Q2

REPORT INFORMATION
  Report Type: Spontaneous
  Country: AU (occurrence: AU)
  Receive Date: 20180525
  Receipt Date: 20180525
  Transmission Date: 20180711
  Serious: Yes (Hospitalization)
  Sender: FDA-Public Use
  Company Number: AU-SUN PHARMACEUTICAL INDUSTRIES LTD-2018RR-173588

PATIENT
  Age: 7 Year
  Sex: Male

DRUGS (1)
  1. CETIRIZINE [Suspect]
     Active Substance: CETIRIZINE HYDROCHLORIDE
     Indication: PRODUCT USED FOR UNKNOWN INDICATION
     Dosage: 5 MG, EVERY MORNING, OCCASIONALLY TWICE A DAY
     Route: 065

REACTIONS (4)
  - Drug prescribing error [Unknown]
  - Incorrect drug administration duration [Unknown]
  - Overdose [Unknown]
  - Dystonia [Unknown]
